FAERS Safety Report 8033076-3 (Version None)
Quarter: 2012Q1

REPORT INFORMATION
  Report Type: 
  Country: None (occurrence: None)
  Receive Date: 20120110
  Receipt Date: 20120103
  Transmission Date: 20120608
  Serious: Yes (Hospitalization)
  Sender: FDA-Public Use
  Company Number: US-BAYER-2011-040441

PATIENT
  Age: 19 Year
  Sex: Female
  Weight: 68.481 kg

DRUGS (8)
  1. ASPIRIN/CAFFEINE [Concomitant]
  2. IRON [Concomitant]
  3. IBUPROFEN [Concomitant]
     Indication: HEADACHE
     Dosage: UNK UNK, QD
  4. FLONASE [Concomitant]
     Route: 045
  5. ACETAMINOPHEN [Concomitant]
  6. NSAID'S [Concomitant]
     Dosage: UNK
     Dates: start: 20090302, end: 20090526
  7. YAZ [Suspect]
     Indication: CONTRACEPTION
     Dosage: UNK
     Dates: start: 20071101, end: 20090610
  8. LORATADINE [Concomitant]
     Dosage: 10 MG, UNK

REACTIONS (8)
  - ABDOMINAL PAIN [None]
  - EMOTIONAL DISTRESS [None]
  - BACK PAIN [None]
  - WEIGHT DECREASED [None]
  - ANXIETY [None]
  - CHOLECYSTITIS ACUTE [None]
  - ABDOMINAL PAIN UPPER [None]
  - DEFAECATION URGENCY [None]
